FAERS Safety Report 4342751-3 (Version None)
Quarter: 2004Q2

REPORT INFORMATION
  Report Type: 
  Country: None (occurrence: None)
  Receive Date: 20040409
  Receipt Date: 20030527
  Transmission Date: 20050107
  Serious: Yes (Hospitalization)
  Sender: FDA-Public Use
  Company Number: 03P-163-0220152-00

PATIENT
  Age: 56 Year
  Sex: Male

DRUGS (4)
  1. DEPAKOTE [Suspect]
     Indication: EPILEPSY
     Dosage: 750 MG, 1 IN 1 D, PER ORAL
     Route: 048
     Dates: start: 19970101
  2. ALENDRONATE SODIUM [Concomitant]
  3. PHENYTOIN SODIUM [Concomitant]
  4. PRIMIDONE [Concomitant]

REACTIONS (2)
  - AMMONIA INCREASED [None]
  - ENCEPHALOPATHY [None]
